FAERS Safety Report 17523239 (Version 1)
Quarter: 2020Q1

REPORT INFORMATION
  Report Type: Spontaneous
  Country: FR (occurrence: FR)
  Receive Date: 20200311
  Receipt Date: 20200311
  Transmission Date: 20200409
  Serious: Yes (Other)
  Sender: FDA-Public Use
  Company Number: FR-AUROBINDO-AUR-APL-2020-011540

PATIENT
  Age: 81 Year
  Sex: Male
  Weight: 63 kg

DRUGS (5)
  1. PERINDOPRIL [Suspect]
     Active Substance: PERINDOPRIL
     Indication: HYPERTENSION
     Dosage: 5 MILLIGRAM, ONCE A DAY
     Route: 048
     Dates: start: 20190924, end: 20191008
  2. FLUOROURACILE [Suspect]
     Active Substance: FLUOROURACIL
     Indication: NEUROENDOCRINE CARCINOMA
     Dosage: 2800 MILLIGRAM/SQ. METER, CYCLICAL
     Route: 042
     Dates: start: 20181204, end: 20190924
  3. IRINOTECAN [Suspect]
     Active Substance: IRINOTECAN
     Indication: NEUROENDOCRINE CARCINOMA
     Dosage: 180 MILLIGRAM/SQ. METER, CYCLICAL180 MILLIGRAM/SQ. METER, CYCLICAL
     Route: 042
     Dates: start: 20181204, end: 20190924
  4. FOLINATE DE CALCIUM [Suspect]
     Active Substance: LEUCOVORIN CALCIUM
     Indication: NEUROENDOCRINE CARCINOMA
     Dosage: 400 MILLIGRAM/SQ. METER, CYCLICAL
     Route: 042
     Dates: start: 20181204, end: 20190924
  5. AVASTIN [Suspect]
     Active Substance: BEVACIZUMAB
     Indication: NEUROENDOCRINE CARCINOMA
     Dosage: 325 MILLIGRAM, CYCLICAL
     Route: 042
     Dates: start: 20181204, end: 20191008

REACTIONS (1)
  - Palmar-plantar erythrodysaesthesia syndrome [Recovered/Resolved]

NARRATIVE: CASE EVENT DATE: 20191008
